FAERS Safety Report 6291132-4 (Version None)
Quarter: 2009Q3

REPORT INFORMATION
  Report Type: 
  Country: None (occurrence: None)
  Receive Date: 20090730
  Receipt Date: 20090723
  Transmission Date: 20100115
  Serious: Yes (Death)
  Sender: FDA-Public Use
  Company Number: A0799283A

PATIENT
  Sex: Female

DRUGS (2)
  1. SALMETEROL FLUTICASONE [Suspect]
     Indication: CHRONIC OBSTRUCTIVE PULMONARY DISEASE
     Route: 055
     Dates: start: 20060101, end: 20090518
  2. OTHER MEDICATIONS [Concomitant]

REACTIONS (1)
  - LUNG DISORDER [None]
